FAERS Safety Report 5170813-X (Version None)
Quarter: 2006Q4

REPORT INFORMATION
  Report Type: 
  Country: None (occurrence: None)
  Receive Date: 20061206
  Receipt Date: 20061206
  Transmission Date: 20070319
  Serious: Yes (Disabling)
  Sender: FDA-Public Use
  Company Number: None

PATIENT
  Sex: Male
  Weight: 3.402 kg

DRUGS (1)
  1. SYNAGIS [Suspect]
     Indication: BRONCHOPULMONARY DYSPLASIA
     Dosage: 51 MG ONE DOSE 030
     Dates: start: 20061017

REACTIONS (8)
  - CYANOSIS [None]
  - DRUG HYPERSENSITIVITY [None]
  - FATIGUE [None]
  - HYDROCEPHALUS [None]
  - HYPERSOMNIA [None]
  - LETHARGY [None]
  - ORAL INTAKE REDUCED [None]
  - SOMNOLENCE [None]
